FAERS Safety Report 18911279 (Version 1)
Quarter: 2021Q1

REPORT INFORMATION
  Report Type: Spontaneous
  Country: US (occurrence: US)
  Receive Date: 20210218
  Receipt Date: 20210218
  Transmission Date: 20210420
  Serious: No
  Sender: FDA-Public Use
  Company Number: US-PFIZER INC-2021122003

PATIENT
  Age: 77 Year
  Sex: Male

DRUGS (1)
  1. EUCRISA [Suspect]
     Active Substance: CRISABOROLE
     Dosage: QD 1 TAB PER DAY

REACTIONS (2)
  - Drug ineffective [Unknown]
  - Product prescribing error [Unknown]
